FAERS Safety Report 24842096 (Version 4)
Quarter: 2025Q2

REPORT INFORMATION
  Report Type: Report from Study
  Country: CA (occurrence: CA)
  Receive Date: 20250115
  Receipt Date: 20250627
  Transmission Date: 20250716
  Serious: Yes (Hospitalization, Other)
  Sender: ABBVIE
  Company Number: CA-ABBVIE-6084275

PATIENT
  Sex: Male

DRUGS (2)
  1. LUPRON [Suspect]
     Active Substance: LEUPROLIDE ACETATE
     Indication: Prostate cancer
     Dosage: 22.5  MG
     Route: 030
     Dates: start: 20240725
  2. LUPRON [Suspect]
     Active Substance: LEUPROLIDE ACETATE
     Dosage: DOSE STRENGTH:22.5 MILLIGRAM
     Route: 030

REACTIONS (2)
  - Lung neoplasm malignant [Recovering/Resolving]
  - Throat cancer [Recovered/Resolved]
